FAERS Safety Report 15526173 (Version 1)
Quarter: 2018Q4

REPORT INFORMATION
  Report Type: Spontaneous
  Country: JP (occurrence: JP)
  Receive Date: 20181018
  Receipt Date: 20181018
  Transmission Date: 20190205
  Serious: Yes (Other)
  Sender: FDA-Public Use
  Company Number: JP-SA-2018SA285288

PATIENT
  Age: 73 Year
  Sex: Male

DRUGS (1)
  1. BCG FOR IMMUNOTHERAPY [Suspect]
     Active Substance: BACILLUS CALMETTE-GUERIN ANTIGEN, UNSPECIFIED SUBSTRAIN
     Indication: BLADDER CANCER
     Dosage: UNK

REACTIONS (4)
  - Polyarthritis [Recovered/Resolved]
  - Reiter^s syndrome [Recovered/Resolved]
  - Haematuria [Recovered/Resolved]
  - Conjunctivitis [Recovered/Resolved]
